FAERS Safety Report 10264753 (Version 2)
Quarter: 2014Q2

REPORT INFORMATION
  Report Type: Spontaneous
  Country: US (occurrence: US)
  Receive Date: 20140627
  Receipt Date: 20140627
  Transmission Date: 20141212
  Serious: Yes (Hospitalization)
  Sender: FDA-Public Use
  Company Number: US-SHIRE-US201402970

PATIENT
  Age: 9 Year
  Sex: Female

DRUGS (2)
  1. CINRYZE [Suspect]
     Indication: HEREDITARY ANGIOEDEMA
     Dosage: 1000 UNITS, OTHER (TWICE A WEEK)
     Route: 042
     Dates: end: 20140320
  2. CINRYZE [Suspect]
     Indication: PROPHYLAXIS
     Dosage: UNK (1500 UNITS), OTHER (EVERY 3 DAYS)
     Route: 042
     Dates: start: 20140321

REACTIONS (4)
  - Hereditary angioedema [Unknown]
  - Clumsiness [Unknown]
  - Therapy change [Not Recovered/Not Resolved]
  - Off label use [Not Recovered/Not Resolved]
